FAERS Safety Report 20371730 (Version 2)
Quarter: 2022Q1

REPORT INFORMATION
  Report Type: Spontaneous
  Country: US (occurrence: US)
  Receive Date: 20220124
  Receipt Date: 20220216
  Transmission Date: 20220423
  Serious: No
  Sender: FDA-Public Use
  Company Number: US-BEH-2022141053

PATIENT
  Sex: Male

DRUGS (2)
  1. HIZENTRA [Suspect]
     Active Substance: HUMAN IMMUNOGLOBULIN G
     Dosage: 18 GRAM, QOW (EVERY 2 WEEKS)
     Route: 058
     Dates: start: 20180127
  2. HIZENTRA [Suspect]
     Active Substance: HUMAN IMMUNOGLOBULIN G
     Dosage: 18 GRAM, QOW
     Route: 058
     Dates: start: 20180127

REACTIONS (2)
  - Injection site erythema [Recovered/Resolved]
  - Recalled product administered [Recovered/Resolved]
